FAERS Safety Report 14674770 (Version 1)
Quarter: 2018Q1

REPORT INFORMATION
  Report Type: Spontaneous
  Country: US (occurrence: US)
  Receive Date: 20180323
  Receipt Date: 20180323
  Transmission Date: 20180509
  Serious: Yes (Other)
  Sender: FDA-Public Use
  Company Number: US-JNJFOC-20180321905

PATIENT
  Age: 74 Year
  Sex: Male

DRUGS (1)
  1. DARATUMUMAB [Suspect]
     Active Substance: DARATUMUMAB
     Indication: PLASMA CELL MYELOMA
     Route: 065

REACTIONS (5)
  - Coombs test positive [Unknown]
  - Abdominal pain [Unknown]
  - Anaemia [Unknown]
  - Melaena [Unknown]
  - Gastrointestinal haemorrhage [Unknown]
